FAERS Safety Report 9803860 (Version 2)
Quarter: 2014Q2

REPORT INFORMATION
  Report Type: Spontaneous
  Country: US (occurrence: US)
  Receive Date: 20140108
  Receipt Date: 20140613
  Transmission Date: 20141212
  Serious: Yes (Other)
  Sender: FDA-Public Use
  Company Number: US-BAYER-2014-002832

PATIENT
  Age: 22 Year
  Sex: Female
  Weight: 86.17 kg

DRUGS (4)
  1. MIRENA [Suspect]
     Indication: CONTRACEPTION
     Dosage: 20 MCG/24HR, CONT
     Route: 015
     Dates: start: 20090820, end: 20100122
  2. FLAGYL [Concomitant]
  3. CIPRO [Concomitant]
  4. DOXYCYCLINE [Concomitant]

REACTIONS (7)
  - Uterine perforation [None]
  - Injury [None]
  - Pain [None]
  - Emotional distress [None]
  - Ovarian cyst [None]
  - Infertility female [None]
  - Device issue [None]
